FAERS Safety Report 4269205-7 (Version None)
Quarter: 2004Q1

REPORT INFORMATION
  Report Type: 
  Country: None (occurrence: None)
  Receive Date: 20040113
  Receipt Date: 20040105
  Transmission Date: 20041129
  Serious: Yes (Other)
  Sender: FDA-Public Use
  Company Number: FR-GLAXOSMITHKLINE-B0318805A

PATIENT
  Age: 84 Year
  Sex: Male

DRUGS (4)
  1. AUGMENTIN [Suspect]
     Route: 050
     Dates: start: 20031223, end: 20031231
  2. AMOXICILLIN [Suspect]
     Route: 048
     Dates: start: 20031230, end: 20031231
  3. RIFAMPICINE [Concomitant]
     Route: 065
     Dates: start: 20031223
  4. FOSFOMYCINE [Concomitant]
     Route: 065
     Dates: start: 20031223

REACTIONS (3)
  - CONFUSIONAL STATE [None]
  - ENCEPHALOPATHY [None]
  - MYOCLONUS [None]
